FAERS Safety Report 9126200 (Version 2)
Quarter: 2013Q2

REPORT INFORMATION
  Report Type: Spontaneous
  Country: US (occurrence: US)
  Receive Date: 20130121
  Receipt Date: 20130502
  Transmission Date: 20140414
  Serious: No
  Sender: FDA-Public Use
  Company Number: US-RB-045835-12

PATIENT
  Age: 33 Year
  Sex: Male

DRUGS (5)
  1. SUBOXONE TABLET [Suspect]
     Indication: DRUG DEPENDENCE
     Route: 060
     Dates: start: 201203, end: 201301
  2. SUBOXONE FILM [Suspect]
     Indication: DRUG DEPENDENCE
     Dosage: SUBOXONE FILM
     Route: 060
     Dates: start: 201301
  3. XANAX [Concomitant]
     Indication: ANXIETY
     Dosage: UNKNOWN DOSING DETAILS
     Route: 065
     Dates: start: 2010
  4. AMBIEN [Concomitant]
     Indication: INSOMNIA
     Dosage: UNKNOWN DOSING DETAILS
     Route: 065
     Dates: start: 2010
  5. TRAZADONE [Concomitant]
     Indication: INSOMNIA
     Dosage: UNKNOWN DOSING DETAILS
     Route: 065
     Dates: start: 2010

REACTIONS (4)
  - Paranoia [Not Recovered/Not Resolved]
  - Panic attack [Not Recovered/Not Resolved]
  - Anxiety [Not Recovered/Not Resolved]
  - Condition aggravated [Not Recovered/Not Resolved]
